FAERS Safety Report 6397710-6 (Version None)
Quarter: 2009Q4

REPORT INFORMATION
  Report Type: 
  Country: None (occurrence: None)
  Receive Date: 20091012
  Receipt Date: 20090928
  Transmission Date: 20100525
  Serious: Yes (Other)
  Sender: FDA-Public Use
  Company Number: GB-MYLANLABS-2009S1017127

PATIENT
  Age: 73 Year

DRUGS (2)
  1. DICLOFENAC [Suspect]
     Indication: DRUG USE FOR UNKNOWN INDICATION
  2. BENDROFLUAZIDE [Suspect]
     Indication: HYPERTENSION

REACTIONS (1)
  - SPONTANEOUS HAEMATOMA [None]
